FAERS Safety Report 4482019-8 (Version None)
Quarter: 2004Q4

REPORT INFORMATION
  Report Type: 
  Country: None (occurrence: None)
  Receive Date: 20041020
  Receipt Date: 20041006
  Transmission Date: 20050328
  Serious: Yes (Hospitalization)
  Sender: FDA-Public Use
  Company Number: US_0409106169

PATIENT
  Age: 74 Year
  Sex: Male

DRUGS (3)
  1. CEFACLOR [Suspect]
     Indication: TOOTH INFECTION
     Dosage: 750 MG OTHER
     Route: 050
     Dates: start: 20040913, end: 20040913
  2. MUCOSTA (REBAMIPIDE) [Concomitant]
  3. EXCELASE [Concomitant]

REACTIONS (10)
  - ANAPHYLACTIC REACTION [None]
  - BLOOD PRESSURE DECREASED [None]
  - CARDIAC DISORDER [None]
  - CHOKING SENSATION [None]
  - DELIRIUM [None]
  - FEELING ABNORMAL [None]
  - INTERSTITIAL LUNG DISEASE [None]
  - PROTEIN TOTAL DECREASED [None]
  - PULMONARY OEDEMA [None]
  - RED BLOOD CELL COUNT DECREASED [None]
